FAERS Safety Report 18445339 (Version 1)
Quarter: 2020Q4

REPORT INFORMATION
  Report Type: Spontaneous
  Country: US (occurrence: US)
  Receive Date: 20201030
  Receipt Date: 20201030
  Transmission Date: 20210114
  Serious: Yes (Other)
  Sender: FDA-Public Use
  Company Number: US-SA-2020SA305801

PATIENT

DRUGS (1)
  1. UNISOM SLEEPTABS [Suspect]
     Active Substance: DOXYLAMINE SUCCINATE
     Indication: SLEEP DISORDER
     Dosage: UNK
     Route: 065

REACTIONS (7)
  - Nausea [Unknown]
  - Anxiety [Unknown]
  - Drug ineffective [Unknown]
  - Unevaluable event [Unknown]
  - Neuropathy peripheral [Unknown]
  - Restless legs syndrome [Unknown]
  - Nightmare [Unknown]
